FAERS Safety Report 23849899 (Version 1)
Quarter: 2024Q2

REPORT INFORMATION
  Report Type: Spontaneous
  Country: AT (occurrence: None)
  Receive Date: 20240513
  Receipt Date: 20240513
  Transmission Date: 20240716
  Serious: Yes (Other)
  Sender: FDA-Public Use
  Company Number: 2024A111120

PATIENT

DRUGS (1)
  1. SEROQUEL [Suspect]
     Active Substance: QUETIAPINE FUMARATE
     Indication: Psychotic disorder
     Dosage: DOCTOR PUSHED MY DOSE UP TO 235MG DURING THE DAY

REACTIONS (13)
  - Anxiety [Unknown]
  - Mental disorder [Unknown]
  - Suicidal ideation [Unknown]
  - Emotional poverty [Unknown]
  - Anhedonia [Unknown]
  - Akathisia [Unknown]
  - Poverty of thought content [Unknown]
  - Cognitive disorder [Unknown]
  - Apathy [Unknown]
  - Loss of personal independence in daily activities [Unknown]
  - Disturbance in attention [Unknown]
  - Condition aggravated [Unknown]
  - Decreased appetite [Unknown]
